FAERS Safety Report 11266181 (Version 1)
Quarter: 2015Q2

REPORT INFORMATION
  Report Type: Spontaneous
  Country: US (occurrence: None)
  Receive Date: 20150625
  Receipt Date: 20150625
  Transmission Date: 20150821
  Serious: Yes (Hospitalization)
  Sender: FDA-Public Use
  Company Number: A-US2014-107343

PATIENT
  Age: 72 Year
  Sex: Male

DRUGS (4)
  1. REMODULIN [Concomitant]
     Active Substance: TREPROSTINIL
  2. SILDENAFIL (SILDENAFIL) [Concomitant]
     Active Substance: SILDENAFIL
  3. OPSUMIT [Suspect]
     Active Substance: MACITENTAN
     Indication: PULMONARY ARTERIAL HYPERTENSION
     Route: 048
  4. WARFARIN (WARFARIN) [Concomitant]
     Active Substance: WARFARIN

REACTIONS (4)
  - Echocardiogram abnormal [None]
  - Pericardial effusion [None]
  - Ventricular dysfunction [None]
  - Dyspnoea [None]

NARRATIVE: CASE EVENT DATE: 20141106
